FAERS Safety Report 24288776 (Version 2)
Quarter: 2024Q4

REPORT INFORMATION
  Report Type: Other
  Country: DE (occurrence: DE)
  Receive Date: 20240906
  Receipt Date: 20241113
  Transmission Date: 20250115
  Serious: Yes (Hospitalization, Other)
  Sender: STRIDES
  Company Number: DE-UCBSA-2024041560

PATIENT
  Sex: Female

DRUGS (40)
  1. PHENOBARBITAL [Suspect]
     Active Substance: PHENOBARBITAL
     Indication: Lennox-Gastaut syndrome
     Dosage: 200 MILLIGRAM/DAY
     Route: 065
     Dates: start: 2022
  2. PHENOBARBITAL [Suspect]
     Active Substance: PHENOBARBITAL
     Indication: Status epilepticus
     Dosage: UNK( ADDITIONAL DOSES OF PB)
     Route: 065
  3. PHENOBARBITAL [Suspect]
     Active Substance: PHENOBARBITAL
     Indication: Tuberous sclerosis complex
  4. TOPIRAMATE [Suspect]
     Active Substance: TOPIRAMATE
     Indication: Lennox-Gastaut syndrome
     Dosage: 900 MILLIGRAM, QD
     Route: 065
     Dates: start: 2000
  5. TOPIRAMATE [Suspect]
     Active Substance: TOPIRAMATE
     Indication: Tuberous sclerosis complex
     Dosage: 400 MILLIGRAM, QD
     Route: 065
     Dates: start: 2022
  6. TOPIRAMATE [Suspect]
     Active Substance: TOPIRAMATE
     Indication: Status epilepticus
  7. DIAZEPAM [Suspect]
     Active Substance: DIAZEPAM
     Indication: Status epilepticus
     Dosage: UNK
     Route: 065
     Dates: start: 2022
  8. LACOSAMIDE [Suspect]
     Active Substance: LACOSAMIDE
     Indication: Lennox-Gastaut syndrome
     Dosage: 500 MILLIGRAM, QD
     Route: 065
     Dates: start: 2010
  9. LACOSAMIDE [Suspect]
     Active Substance: LACOSAMIDE
     Indication: Tuberous sclerosis complex
     Dosage: 500 MILLIGRAM, QD
     Route: 065
     Dates: start: 2016
  10. LACOSAMIDE [Suspect]
     Active Substance: LACOSAMIDE
     Indication: Seizure
     Dosage: 500 MILLIGRAM, QD
     Route: 065
     Dates: start: 2020
  11. LACOSAMIDE [Suspect]
     Active Substance: LACOSAMIDE
     Dosage: 400 MILLIGRAM, QD
     Route: 065
  12. PREGABALIN [Suspect]
     Active Substance: PREGABALIN
     Indication: Seizure
     Dosage: UNK (RECEIVED BEFORE 2003)
     Route: 065
  13. LEVETIRACETAM [Suspect]
     Active Substance: LEVETIRACETAM
     Indication: Seizure
     Dosage: 3000 MILLIGRAM, QD
     Route: 065
     Dates: start: 2010, end: 2020
  14. EVEROLIMUS [Suspect]
     Active Substance: EVEROLIMUS
     Indication: Lennox-Gastaut syndrome
     Dosage: 5 MILLIGRAM
     Route: 065
  15. EVEROLIMUS [Suspect]
     Active Substance: EVEROLIMUS
     Indication: Tuberous sclerosis complex
     Dosage: 2.5 MILLIGRAM, QD
     Route: 065
     Dates: start: 2020
  16. EVEROLIMUS [Suspect]
     Active Substance: EVEROLIMUS
     Indication: Seizure
     Dosage: 2.5 MILLIGRAM, QD
     Route: 065
  17. EVEROLIMUS [Suspect]
     Active Substance: EVEROLIMUS
     Indication: Status epilepticus
  18. VIGABATRIN [Suspect]
     Active Substance: VIGABATRIN
     Indication: Seizure
     Dosage: 900 MILLIGRAM, QD
     Route: 065
     Dates: start: 1998
  19. SULTHIAME [Suspect]
     Active Substance: SULTHIAME
     Indication: Seizure
     Dosage: UNK
     Route: 065
     Dates: start: 2000
  20. METHSUXIMIDE [Suspect]
     Active Substance: METHSUXIMIDE
     Indication: Seizure
     Dosage: 375 MILLIGRAM, QD (RECEIVED BEFORE 2003)
     Route: 065
  21. PRIMIDONE [Suspect]
     Active Substance: PRIMIDONE
     Indication: Seizure
     Dosage: UNK (RECEIVED BEFORE 2003)
     Route: 065
  22. ZONISAMIDE [Suspect]
     Active Substance: ZONISAMIDE
     Indication: Seizure
     Dosage: UNK (RECEIVED BEFORE 2003)
     Route: 065
  23. PHENYTOIN [Suspect]
     Active Substance: PHENYTOIN
     Indication: Seizure
     Dosage: 1500 MILLIGRAM, QD
     Route: 065
     Dates: start: 2008, end: 2020
  24. PHENYTOIN [Suspect]
     Active Substance: PHENYTOIN
     Indication: Status epilepticus
     Dosage: 1.5 GRAM (RECEIVED LOADING DOSE OF 1.5G OVER 30?MIN)
     Route: 042
     Dates: start: 2022, end: 2022
  25. PHENYTOIN [Suspect]
     Active Substance: PHENYTOIN
     Dosage: 750 MILLIGRAM, OVER 12 HR
     Route: 042
     Dates: start: 2022, end: 2022
  26. VALPROIC ACID [Suspect]
     Active Substance: VALPROIC ACID
     Indication: Seizure
     Dosage: 1500 MILLIGRAM, QD
     Route: 065
     Dates: start: 2010
  27. VALPROIC ACID [Suspect]
     Active Substance: VALPROIC ACID
     Dosage: 1.2 GRAM, QD
     Route: 065
     Dates: start: 2022
  28. CLOBAZAM [Suspect]
     Active Substance: CLOBAZAM
     Indication: Seizure
     Dosage: 20 MILLIGRAM, QD
     Route: 065
     Dates: start: 2014
  29. RUFINAMIDE [Suspect]
     Active Substance: RUFINAMIDE
     Indication: Seizure
     Dosage: 3200 MILLIGRAM, QD
     Route: 065
     Dates: start: 2015
  30. CANNABIDIOL [Suspect]
     Active Substance: CANNABIDIOL
     Indication: Seizure
     Dosage: 1580 MILLIGRAM, QD
     Route: 065
     Dates: start: 2020
  31. BRIVARACETAM [Suspect]
     Active Substance: BRIVARACETAM
     Indication: Seizure
     Dosage: 200 MILLIGRAM, QD
     Route: 065
     Dates: start: 2020, end: 2022
  32. MIDAZOLAM [Suspect]
     Active Substance: MIDAZOLAM
     Indication: Seizure
     Dosage: UNK
     Route: 065
     Dates: start: 2022
  33. PERAMPANEL [Suspect]
     Active Substance: PERAMPANEL
     Indication: Seizure
     Dosage: 12 MILLIGRAM, QD
     Route: 065
     Dates: start: 2022
  34. ESKETAMINE [Suspect]
     Active Substance: ESKETAMINE
     Indication: Status epilepticus
     Dosage: UNK
     Route: 065
     Dates: start: 2022
  35. ISOFLURANE [Suspect]
     Active Substance: ISOFLURANE
     Indication: Status epilepticus
     Dosage: UNK
     Route: 065
     Dates: start: 2022
  36. FENFLURAMINE [Concomitant]
     Active Substance: FENFLURAMINE
     Indication: Status epilepticus
     Dosage: 42 MILLIGRAM, QD (FFA DOSAGE WAS INCREASED TO A PEAK DOSE OF 42 MG/DAY WITHIN 8 DAYS, WHICH EQUALLED
  37. FENFLURAMINE [Concomitant]
     Active Substance: FENFLURAMINE
     Indication: Lennox-Gastaut syndrome
     Dosage: 21 MILLIGRAM, QD
  38. FENFLURAMINE [Concomitant]
     Active Substance: FENFLURAMINE
     Indication: Tuberous sclerosis complex
     Dosage: UNK
     Route: 065
  39. PROPOFOL [Concomitant]
     Active Substance: PROPOFOL
     Indication: Seizure
     Dosage: UNK
     Route: 065
     Dates: start: 20221103, end: 20221109
  40. PROPOFOL [Concomitant]
     Active Substance: PROPOFOL
     Dosage: UNK, (DOSE REDUCED)
     Route: 065

REACTIONS (4)
  - Seizure [Unknown]
  - Drug ineffective [Unknown]
  - Multiple-drug resistance [Unknown]
  - Off label use [Unknown]
